FAERS Safety Report 11928883 (Version 1)
Quarter: 2016Q1

REPORT INFORMATION
  Report Type: Spontaneous
  Country: PL (occurrence: PL)
  Receive Date: 20160119
  Receipt Date: 20160119
  Transmission Date: 20160526
  Serious: Yes (Death, Hospitalization, Other)
  Sender: FDA-Public Use
  Company Number: PL-JNJFOC-20160101971

PATIENT

DRUGS (3)
  1. ACETAMINOPHEN. [Suspect]
     Active Substance: ACETAMINOPHEN
     Indication: PRODUCT USED FOR UNKNOWN INDICATION
     Route: 048
  2. ALCOHOL. [Suspect]
     Active Substance: ALCOHOL
     Indication: PRODUCT USED FOR UNKNOWN INDICATION
     Route: 065
  3. ACETAMINOPHEN. [Suspect]
     Active Substance: ACETAMINOPHEN
     Route: 048

REACTIONS (11)
  - Haematuria [Unknown]
  - Cirrhosis alcoholic [Unknown]
  - Transaminases increased [Unknown]
  - Bladder tamponade [Unknown]
  - Gastrointestinal haemorrhage [Unknown]
  - Coagulopathy [Unknown]
  - Coma hepatic [Unknown]
  - Suicide attempt [Unknown]
  - Toxicity to various agents [Unknown]
  - Drug-induced liver injury [Unknown]
  - Death [Fatal]
